FAERS Safety Report 18584246 (Version 5)
Quarter: 2022Q4

REPORT INFORMATION
  Report Type: Other
  Country: US (occurrence: None)
  Receive Date: 20201207
  Receipt Date: 20221213
  Transmission Date: 20230113
  Serious: No
  Sender: FDA-Public Use
  Company Number: US-ROCHE-2204995

PATIENT
  Age: 56 Year
  Sex: Male
  Weight: 90.800 kg

DRUGS (9)
  1. OCREVUS [Suspect]
     Active Substance: OCRELIZUMAB
     Indication: Relapsing-remitting multiple sclerosis
     Dosage: 1ST SPLIT DOSE
     Route: 042
     Dates: start: 20180427
  2. OCREVUS [Suspect]
     Active Substance: OCRELIZUMAB
     Dosage: 2ND SPLIT DOSE
     Route: 042
     Dates: start: 20180517
  3. OCREVUS [Suspect]
     Active Substance: OCRELIZUMAB
     Route: 042
     Dates: start: 2017
  4. OCREVUS [Suspect]
     Active Substance: OCRELIZUMAB
     Route: 042
  5. OCREVUS [Suspect]
     Active Substance: OCRELIZUMAB
     Route: 042
  6. OCREVUS [Suspect]
     Active Substance: OCRELIZUMAB
     Route: 042
     Dates: start: 2017
  7. PRILOSEC [Concomitant]
     Active Substance: OMEPRAZOLE MAGNESIUM
     Indication: Dyspepsia
     Route: 048
  8. PROVIGIL [Concomitant]
     Active Substance: MODAFINIL
     Indication: Fatigue
     Route: 048
  9. ZOFRAN [Concomitant]
     Active Substance: ONDANSETRON HYDROCHLORIDE
     Route: 048

REACTIONS (7)
  - Nausea [Recovered/Resolved]
  - Fatigue [Recovered/Resolved]
  - Influenza [Unknown]
  - Feeling hot [Not Recovered/Not Resolved]
  - Off label use [Unknown]
  - Off label use [Unknown]
  - Lethargy [Recovered/Resolved]

NARRATIVE: CASE EVENT DATE: 20180427
